FAERS Safety Report 10280016 (Version 4)
Quarter: 2016Q2

REPORT INFORMATION
  Report Type: Spontaneous
  Country: JP (occurrence: JP)
  Receive Date: 20140707
  Receipt Date: 20160530
  Transmission Date: 20160815
  Serious: Yes (Hospitalization, Other)
  Sender: FDA-Public Use
  Company Number: JP-JNJFOC-20140620243

PATIENT
  Age: 36 Year
  Sex: Male

DRUGS (3)
  1. RISPERIDAL [Suspect]
     Active Substance: RISPERIDONE
     Indication: SCHIZOPHRENIA
     Route: 048
     Dates: start: 2014, end: 20140623
  2. RISPERDAL [Suspect]
     Active Substance: RISPERIDONE
     Indication: SCHIZOPHRENIA
     Route: 048
     Dates: start: 20140619, end: 20140623
  3. HALOSTEN [Suspect]
     Active Substance: HALOPERIDOL
     Indication: SCHIZOPHRENIA
     Route: 048
     Dates: start: 20140619, end: 20140623

REACTIONS (6)
  - Pneumonia [Unknown]
  - Neuroleptic malignant syndrome [Unknown]
  - Hepatic enzyme increased [Unknown]
  - Hallucination, auditory [Unknown]
  - Haematemesis [Unknown]
  - Seizure [Unknown]

NARRATIVE: CASE EVENT DATE: 20140619
